FAERS Safety Report 19492816 (Version 1)
Quarter: 2021Q3

REPORT INFORMATION
  Report Type: Spontaneous
  Country: GB (occurrence: GB)
  Receive Date: 20210705
  Receipt Date: 20210705
  Transmission Date: 20211014
  Serious: Yes (Life-Threatening, Other)
  Sender: FDA-Public Use
  Company Number: GB-ALKEM LABORATORIES LIMITED-GB-ALKEM-2021-04229

PATIENT
  Age: 35 Year
  Sex: Female

DRUGS (1)
  1. QUETIAPINE FUMARATE. [Suspect]
     Active Substance: QUETIAPINE FUMARATE
     Indication: BIPOLAR DISORDER
     Dosage: 25 MILLIGRAM, QD
     Route: 048
     Dates: start: 20190218, end: 20200520

REACTIONS (4)
  - Psychotic disorder [Not Recovered/Not Resolved]
  - Self-injurious ideation [Unknown]
  - Suicide attempt [Unknown]
  - Ulcer [Not Recovered/Not Resolved]

NARRATIVE: CASE EVENT DATE: 20190218
